FAERS Safety Report 6342843-3 (Version None)
Quarter: 2009Q3

REPORT INFORMATION
  Report Type: 
  Country: None (occurrence: None)
  Receive Date: 20090908
  Receipt Date: 20090827
  Transmission Date: 20100115
  Serious: Yes (Other)
  Sender: FDA-Public Use
  Company Number: BR-ROCHE-627377

PATIENT
  Sex: Male

DRUGS (2)
  1. ROACUTAN [Suspect]
     Route: 048
     Dates: start: 20081101
  2. ROACUTAN [Suspect]
     Route: 048

REACTIONS (7)
  - ACNE [None]
  - CYST [None]
  - DEPRESSION [None]
  - DRUG INEFFECTIVE [None]
  - MILIA [None]
  - SCAR [None]
  - SUICIDAL IDEATION [None]
